FAERS Safety Report 25279508 (Version 4)
Quarter: 2025Q2

REPORT INFORMATION
  Report Type: Spontaneous
  Country: US (occurrence: US)
  Receive Date: 20250507
  Receipt Date: 20250620
  Transmission Date: 20250717
  Serious: Yes (Other)
  Sender: PFIZER
  Company Number: US-PFIZER INC-202500095043

PATIENT
  Age: 53 Year
  Sex: Female

DRUGS (29)
  1. IBRANCE [Suspect]
     Active Substance: PALBOCICLIB
     Indication: Breast cancer female
     Route: 048
     Dates: start: 20250328
  2. IBRANCE [Suspect]
     Active Substance: PALBOCICLIB
     Route: 048
     Dates: start: 20250508
  3. ITOVEBI [Concomitant]
     Active Substance: INAVOLISIB
  4. TRIAMCINOLONE [Concomitant]
     Active Substance: TRIAMCINOLONE
  5. LISINOPRIL [Concomitant]
     Active Substance: LISINOPRIL
  6. OXYCODONE [Concomitant]
     Active Substance: OXYCODONE
  7. BETAMETHASONE [Concomitant]
     Active Substance: BETAMETHASONE
  8. ACETAMINOPHEN\HYDROCODONE [Concomitant]
     Active Substance: ACETAMINOPHEN\HYDROCODONE
  9. DIAZEPAM [Concomitant]
     Active Substance: DIAZEPAM
  10. VALACYCLOVIR [Concomitant]
     Active Substance: VALACYCLOVIR HYDROCHLORIDE
  11. DEXAMETHASONE [Concomitant]
     Active Substance: DEXAMETHASONE
  12. BACLOFEN [Concomitant]
     Active Substance: BACLOFEN
  13. GABAPENTIN [Concomitant]
     Active Substance: GABAPENTIN
  14. ONDANSETRON [Concomitant]
     Active Substance: ONDANSETRON
  15. PROCHLORPERAZINE [Concomitant]
     Active Substance: PROCHLORPERAZINE
  16. FULVESTRANT [Concomitant]
     Active Substance: FULVESTRANT
  17. XGEVA [Concomitant]
     Active Substance: DENOSUMAB
  18. BACTROBAN [Concomitant]
     Active Substance: MUPIROCIN CALCIUM
  19. DIPROLENE [Concomitant]
     Active Substance: BETAMETHASONE DIPROPIONATE
  20. IPRATROPIUM [Concomitant]
     Active Substance: IPRATROPIUM
  21. TYLENOL [Concomitant]
     Active Substance: ACETAMINOPHEN
  22. VITAMIN D NOS [Concomitant]
     Active Substance: CHOLECALCIFEROL\ERGOCALCIFEROL
  23. LIDOCAINE [Concomitant]
     Active Substance: LIDOCAINE
  24. ANTACID (ALUMINUM HYDROXIDE\MAGNESIUM CARBONATE) [Concomitant]
     Active Substance: ALUMINUM HYDROXIDE\MAGNESIUM CARBONATE
  25. DIPHENHYDRAMINE [Concomitant]
     Active Substance: DIPHENHYDRAMINE
  26. HYDROMORPHONE [Concomitant]
     Active Substance: HYDROMORPHONE
  27. VICODIN [Concomitant]
     Active Substance: ACETAMINOPHEN\HYDROCODONE BITARTRATE
  28. KISQALI [Concomitant]
     Active Substance: RIBOCICLIB SUCCINATE
  29. ANASTROZOLE [Concomitant]
     Active Substance: ANASTROZOLE

REACTIONS (5)
  - Breast cancer female [Unknown]
  - Malignant neoplasm progression [Unknown]
  - Red blood cell count decreased [Unknown]
  - White blood cell count decreased [Unknown]
  - Neutrophil count decreased [Unknown]

NARRATIVE: CASE EVENT DATE: 20250101
